FAERS Safety Report 8716824 (Version 4)
Quarter: 2013Q3

REPORT INFORMATION
  Report Type: Report from Study
  Country: FR (occurrence: FR)
  Receive Date: 20120810
  Receipt Date: 20130730
  Transmission Date: 20140515
  Serious: Yes (Death)
  Sender: FDA-Public Use
  Company Number: FR-PFIZER INC-2012192808

PATIENT
  Age: 53 Year
  Sex: Male
  Weight: 47 kg

DRUGS (3)
  1. CRIZOTINIB [Suspect]
     Dosage: 500 MG, DAILY
     Dates: start: 20120308, end: 20120607
  2. OXYCONTIN [Concomitant]
     Indication: ANALGESIC THERAPY
     Dosage: 60 MG, 2X/DAY
     Route: 048
     Dates: start: 20120119
  3. CORTANCYL [Concomitant]
     Dosage: 20 MG, 1X/DAY
     Route: 048
     Dates: start: 20110901

REACTIONS (1)
  - Death [Fatal]
